FAERS Safety Report 5810932-5 (Version None)
Quarter: 2008Q3

REPORT INFORMATION
  Report Type: 
  Country: None (occurrence: None)
  Receive Date: 20080716
  Receipt Date: 20080707
  Transmission Date: 20090109
  Serious: Yes (Hospitalization, Other)
  Sender: FDA-Public Use
  Company Number: PHEH2008US05738

PATIENT
  Sex: Female
  Weight: 68.027 kg

DRUGS (4)
  1. GLEEVEC [Suspect]
     Indication: CHRONIC MYELOID LEUKAEMIA
     Dosage: 400 MG, QD
     Route: 048
     Dates: start: 20080523, end: 20080619
  2. TYLENOL [Interacting]
     Indication: PAIN
     Dosage: 500 MG 1-2 PER DAY
     Dates: start: 20080501, end: 20080617
  3. VICODIN [Concomitant]
     Indication: PAIN
     Dosage: 500/5 1-2 PER DAY
     Dates: start: 20080501, end: 20080617
  4. MIDRIN [Concomitant]
     Indication: PAIN
     Dosage: 25/100 1 Q 2-3 DAYS
     Dates: start: 20080501, end: 20080617

REACTIONS (7)
  - CHROMATURIA [None]
  - CYTOLYTIC HEPATITIS [None]
  - DRUG INTERACTION [None]
  - HEPATIC FAILURE [None]
  - HEPATITIS FULMINANT [None]
  - JAUNDICE [None]
  - MENORRHAGIA [None]
